FAERS Safety Report 9337701 (Version 1)
Quarter: 2013Q2

REPORT INFORMATION
  Report Type: Spontaneous
  Country: IT (occurrence: IT)
  Receive Date: 20130607
  Receipt Date: 20130607
  Transmission Date: 20140414
  Serious: Yes (Other)
  Sender: FDA-Public Use
  Company Number: IT-MYLANLABS-2013S1011499

PATIENT
  Age: 54 Year
  Sex: Male

DRUGS (3)
  1. OMEPRAZOLE [Suspect]
     Indication: GASTROOESOPHAGEAL REFLUX DISEASE
     Route: 048
     Dates: start: 20130520, end: 20130520
  2. TRIATEC HCT [Concomitant]
     Indication: PRODUCT USED FOR UNKNOWN INDICATION
     Route: 048
  3. SUCRALFATO [Concomitant]
     Indication: GASTRITIS

REACTIONS (3)
  - Dyspnoea [Recovered/Resolved]
  - Oedema mouth [Recovered/Resolved]
  - Periorbital oedema [Recovered/Resolved]
